FAERS Safety Report 5114081-3 (Version None)
Quarter: 2006Q3

REPORT INFORMATION
  Report Type: 
  Country: None (occurrence: None)
  Receive Date: 20060925
  Receipt Date: 20060919
  Transmission Date: 20061208
  Serious: Yes (Other)
  Sender: FDA-Public Use
  Company Number: US-GLAXOSMITHKLINE-A0620710A

PATIENT
  Age: 13 Year
  Sex: Female

DRUGS (3)
  1. LAMICTAL [Suspect]
     Indication: BIPOLAR DISORDER
     Dosage: 300MG PER DAY
     Route: 048
     Dates: start: 20060101, end: 20060914
  2. ABILIFY [Concomitant]
  3. CYMBALTA [Concomitant]

REACTIONS (2)
  - OVERDOSE [None]
  - SYNCOPE [None]
